FAERS Safety Report 9803772 (Version 1)
Quarter: 2014Q1

REPORT INFORMATION
  Report Type: Spontaneous
  Country: US (occurrence: US)
  Receive Date: 20140108
  Receipt Date: 20140108
  Transmission Date: 20141002
  Serious: No
  Sender: FDA-Public Use
  Company Number: US-GLAXOSMITHKLINE-A1035720A

PATIENT
  Age: 69 Year
  Sex: Male

DRUGS (4)
  1. LOVAZA [Suspect]
     Indication: BLOOD TRIGLYCERIDES INCREASED
     Dosage: 4CAP PER DAY
     Route: 048
     Dates: start: 20130630
  2. DIAMOX [Concomitant]
  3. CRESTOR [Concomitant]
  4. ZETIA [Concomitant]

REACTIONS (2)
  - Dysphagia [Not Recovered/Not Resolved]
  - Wrong technique in drug usage process [Unknown]
